FAERS Safety Report 9470757 (Version 1)
Quarter: 2013Q3

REPORT INFORMATION
  Report Type: Spontaneous
  Country: US (occurrence: US)
  Receive Date: 20130822
  Receipt Date: 20130822
  Transmission Date: 20140515
  Serious: No
  Sender: FDA-Public Use
  Company Number: US-SANOFI-AVENTIS-2013SA077973

PATIENT
  Age: 66 Year
  Sex: Female

DRUGS (2)
  1. ZALTRAP [Suspect]
     Route: 065
     Dates: start: 20130709, end: 20130709
  2. ZALTRAP [Suspect]
     Route: 065

REACTIONS (3)
  - Aphagia [Not Recovered/Not Resolved]
  - Odynophagia [Not Recovered/Not Resolved]
  - Stomatitis [Unknown]
